FAERS Safety Report 10056599 (Version 1)
Quarter: 2014Q2

REPORT INFORMATION
  Report Type: Spontaneous
  Country: AU (occurrence: AU)
  Receive Date: 20140403
  Receipt Date: 20140403
  Transmission Date: 20141212
  Serious: Yes (Hospitalization)
  Sender: FDA-Public Use
  Company Number: AU-ASTRAZENECA-2014SE21388

PATIENT
  Age: 71 Year
  Sex: 0

DRUGS (6)
  1. LIGNOCAINE [Suspect]
     Route: 065
     Dates: start: 20131011, end: 20131012
  2. PROPOFOL [Suspect]
     Route: 042
     Dates: start: 20131011
  3. FENTANYL [Suspect]
     Route: 065
     Dates: start: 20131011
  4. CISATRACURIUM BESYLATE [Suspect]
     Route: 065
     Dates: start: 20131011
  5. KETAMINE HYDROCHLORIDE [Suspect]
     Route: 065
     Dates: start: 20131011, end: 20131012
  6. MIDAZOLAM [Suspect]
     Route: 065
     Dates: start: 20131011

REACTIONS (6)
  - Confusional state [Recovered/Resolved]
  - Delirium [Recovered/Resolved]
  - Pain [Recovered/Resolved]
  - Blood sodium decreased [Recovered/Resolved]
  - Oxygen saturation decreased [Recovered/Resolved]
  - Hypotension [Recovered/Resolved]
